FAERS Safety Report 4979711-5 (Version None)
Quarter: 2006Q2

REPORT INFORMATION
  Report Type: 
  Country: None (occurrence: None)
  Receive Date: 20060418
  Receipt Date: 20060406
  Transmission Date: 20061013
  Serious: Yes (Death, Hospitalization)
  Sender: FDA-Public Use
  Company Number: HQWYE692407APR06

PATIENT
  Age: 59 Year
  Sex: Female

DRUGS (13)
  1. ARTANE [Suspect]
     Indication: SCHIZOPHRENIA
     Dosage: 4 MG 1X PER 1 DAY ORAL
     Route: 048
     Dates: start: 20000101
  2. DOXAZOSIN MESYLATE [Concomitant]
  3. FOSAMAX [Concomitant]
  4. ALFAROL (ALFACALCIDOL) [Concomitant]
  5. CARVEDILOL [Concomitant]
  6. VIT K CAP [Concomitant]
  7. OSTEN (IPRIFLAVONE) [Concomitant]
  8. BLOPRESS (CANDESARTAN CILEXETIL) [Concomitant]
  9. HALOPERIDOL [Concomitant]
  10. LENDORM [Concomitant]
  11. IMPROMEN (BROMPERIDOL) [Concomitant]
  12. VEGETAMIN (CHLORPROMAZINE HYDROCHLORIDE/PHENOBARBITAL/PROMETHAZINE HYD [Concomitant]
  13. LIPIDIL [Concomitant]

REACTIONS (7)
  - BLOOD PRESSURE DECREASED [None]
  - DIABETIC KETOACIDOSIS [None]
  - HEART RATE INCREASED [None]
  - HYPERAMYLASAEMIA [None]
  - ILL-DEFINED DISORDER [None]
  - NEUROLEPTIC MALIGNANT SYNDROME [None]
  - RENAL FAILURE ACUTE [None]
